FAERS Safety Report 10418378 (Version 1)
Quarter: 2014Q3

REPORT INFORMATION
  Report Type: Spontaneous
  Country: US (occurrence: None)
  Receive Date: 20140827
  Receipt Date: 20140827
  Transmission Date: 20150326
  Serious: Yes (Hospitalization, Other)
  Sender: FDA-Public Use
  Company Number: ADR-2014-01510

PATIENT
  Age: 11 Year
  Sex: Female

DRUGS (1)
  1. LIORESAL [Suspect]
     Active Substance: BACLOFEN
     Indication: MUSCLE SPASTICITY

REACTIONS (11)
  - Cerebrospinal fluid leakage [None]
  - Waist circumference increased [None]
  - C-reactive protein increased [None]
  - Implant site infection [None]
  - White blood cell count increased [None]
  - Muscle tone disorder [None]
  - Implant site extravasation [None]
  - Implant site oedema [None]
  - Device leakage [None]
  - Purulent discharge [None]
  - Infection [None]

NARRATIVE: CASE EVENT DATE: 20130610
